FAERS Safety Report 5755404-1 (Version None)
Quarter: 2008Q2

REPORT INFORMATION
  Report Type: 
  Country: None (occurrence: None)
  Receive Date: 20080529
  Receipt Date: 20080529
  Transmission Date: 20081010
  Serious: Yes (Hospitalization)
  Sender: FDA-Public Use
  Company Number: None

PATIENT
  Sex: Male
  Weight: 76 kg

DRUGS (3)
  1. FLUOROURACIL [Suspect]
     Indication: TONGUE NEOPLASM MALIGNANT STAGE UNSPECIFIED
     Dosage: 600MG/M2 IV DAILY X 5DAYS
     Route: 042
     Dates: start: 20080518, end: 20080523
  2. CETUXIMAB [Suspect]
     Indication: TONGUE NEOPLASM MALIGNANT STAGE UNSPECIFIED
     Dosage: 250MG/M2 IV QWEEK
     Route: 042
     Dates: start: 20080311, end: 20080519
  3. HYDREA [Suspect]
     Dosage: 500MG PO BID
     Route: 048
     Dates: start: 20080518

REACTIONS (2)
  - CATHETER SITE DISCHARGE [None]
  - PURULENT DISCHARGE [None]
